FAERS Safety Report 4906824-6 (Version None)
Quarter: 2006Q1

REPORT INFORMATION
  Report Type: 
  Country: None (occurrence: None)
  Receive Date: 20060207
  Receipt Date: 20060113
  Transmission Date: 20060701
  Serious: No
  Sender: FDA-Public Use
  Company Number: 06H-087-0304311-00

PATIENT
  Age: 75 Year
  Sex: Male
  Weight: 80 kg

DRUGS (21)
  1. PRECEDEX [Suspect]
     Indication: SEDATION
     Dosage: 0.6 - 0.7 MCG/KG/HR, INTRAVENOUS
     Route: 042
     Dates: start: 20051208, end: 20051215
  2. PROPOFOL [Suspect]
     Indication: GENERAL ANAESTHESIA
     Dosage: INTRAVENOUS
     Route: 042
     Dates: start: 20051208, end: 20051208
  3. VALSARTAN [Concomitant]
  4. BENZBROMARONE (BENZBROMARONE) [Concomitant]
  5. AMLODIPINE BESYLATE [Concomitant]
  6. GLYBURIDE [Concomitant]
  7. ISOSORBIDE (ISOSORBIDE) [Concomitant]
  8. BEZAFIBRATE (BEZAFIBRATE) [Concomitant]
  9. METFORMIN HCL [Concomitant]
  10. TRIAZOLAM [Concomitant]
  11. ESTAZOLAM [Concomitant]
  12. ASPIRIN [Concomitant]
  13. HEPARIN [Concomitant]
  14. VECURONIUM (VECURONIUM) [Concomitant]
  15. FENTANYL [Concomitant]
  16. MIDAZOLAM HCL [Concomitant]
  17. EPHEDRINE SUL CAP [Concomitant]
  18. PHENYLEPHRINE (PHENYLEPHRINE) [Concomitant]
  19. DOPAMINE HCL [Concomitant]
  20. NORADRENALINE (NOREPINEPHRINE) [Concomitant]
  21. OLPRINONE [Concomitant]

REACTIONS (5)
  - ASPARTATE AMINOTRANSFERASE ABNORMAL [None]
  - BLOOD CREATININE ABNORMAL [None]
  - HAEMODIALYSIS [None]
  - HYPOALBUMINAEMIA [None]
  - PROTHROMBIN TIME PROLONGED [None]
